FAERS Safety Report 9663630 (Version 1)
Quarter: 2013Q4

REPORT INFORMATION
  Report Type: Spontaneous
  Country: US (occurrence: US)
  Receive Date: 20131101
  Receipt Date: 20131101
  Transmission Date: 20140711
  Serious: No
  Sender: FDA-Public Use
  Company Number: US-PFIZER INC-2013312007

PATIENT
  Age: 61 Year
  Sex: Female

DRUGS (4)
  1. DILANTIN-125 [Suspect]
  2. ASPIRIN [Suspect]
  3. DEMEROL [Suspect]
  4. PARAFON FORTE [Suspect]
     Dosage: UNK

REACTIONS (1)
  - Drug hypersensitivity [Unknown]
